FAERS Safety Report 16283824 (Version 1)
Quarter: 2019Q2

REPORT INFORMATION
  Report Type: Spontaneous
  Country: US (occurrence: US)
  Receive Date: 20190507
  Receipt Date: 20190507
  Transmission Date: 20190711
  Serious: Yes (Other)
  Sender: FDA-Public Use
  Company Number: US-PFIZER INC-2019189635

PATIENT
  Age: 69 Year
  Sex: Male

DRUGS (1)
  1. FUROSEMIDE. [Suspect]
     Active Substance: FUROSEMIDE
     Indication: PULMONARY OEDEMA
     Dosage: UNK
     Route: 042

REACTIONS (3)
  - Drug ineffective [Unknown]
  - Oedema peripheral [Unknown]
  - Orthopnoea [Unknown]
